FAERS Safety Report 8095907-0 (Version None)
Quarter: 2012Q1

REPORT INFORMATION
  Report Type: 
  Country: None (occurrence: None)
  Receive Date: 20120126
  Receipt Date: 20120113
  Transmission Date: 20120608
  Serious: Yes (Life-Threatening, Hospitalization)
  Sender: FDA-Public Use
  Company Number: 2009AP002708

PATIENT
  Age: 29 Year
  Sex: Male

DRUGS (5)
  1. IBUPROFEN [Suspect]
     Indication: ABDOMINAL PAIN
     Dosage: 400 MG;TID
     Route: 048
     Dates: start: 20090605, end: 20090609
  2. ASPIRIN [Suspect]
     Indication: ABDOMINAL PAIN
     Dosage: 300 MG;TID
     Route: 048
     Dates: start: 20090610, end: 20090612
  3. BECLOMETHASONE DIPROPIONATE [Concomitant]
  4. CITALOPRAM HYDROBROMIDE [Suspect]
     Indication: DEPRESSION
     Dosage: 20 MG;QD
     Route: 048
     Dates: start: 20090105, end: 20090616
  5. CETIRIZINE [Concomitant]

REACTIONS (1)
  - GASTRIC ULCER PERFORATION [None]
